FAERS Safety Report 23940002 (Version 2)
Quarter: 2024Q3

REPORT INFORMATION
  Report Type: Report from Study
  Country: TN (occurrence: TN)
  Receive Date: 20240605
  Receipt Date: 20240820
  Transmission Date: 20241016
  Serious: Yes (Hospitalization, Other)
  Sender: ABBVIE
  Company Number: TN-ABBVIE-5786523

PATIENT
  Age: 37 Year
  Sex: Male

DRUGS (5)
  1. HUMIRA [Suspect]
     Active Substance: ADALIMUMAB
     Indication: Crohn^s disease
     Dosage: FORM STRENGTH-40 MG?STOP DATE TEXT: APPROXIMATELY 2 MONTHS AGO
     Route: 058
     Dates: start: 20230501, end: 202403
  2. HUMIRA [Suspect]
     Active Substance: ADALIMUMAB
     Dosage: FORM STRENGTH-40 MG
     Route: 058
     Dates: start: 20070101, end: 20230222
  3. HUMIRA [Suspect]
     Active Substance: ADALIMUMAB
     Dosage: FORM STRENGTH-40 MG
     Route: 058
     Dates: start: 20240615
  4. AZATHIOPRINE SODIUM [Concomitant]
     Active Substance: AZATHIOPRINE SODIUM
     Indication: Crohn^s disease
     Dosage: 2.5 TABLET
     Route: 048
     Dates: start: 20240717
  5. AZATHIOPRINE SODIUM [Concomitant]
     Active Substance: AZATHIOPRINE SODIUM
     Indication: Crohn^s disease
     Dosage: 2 TABLET
     Route: 048
     Dates: start: 2007, end: 202403

REACTIONS (8)
  - Abdominal hernia obstructive [Recovering/Resolving]
  - Faecal volume decreased [Recovered/Resolved]
  - Crohn^s disease [Unknown]
  - Hospitalisation [Recovering/Resolving]
  - Post procedural infection [Unknown]
  - Localised oedema [Recovered/Resolved]
  - Drug level decreased [Unknown]
  - Drug hypersensitivity [Recovered/Resolved]

NARRATIVE: CASE EVENT DATE: 20240313
